FAERS Safety Report 16569459 (Version 1)
Quarter: 2019Q3

REPORT INFORMATION
  Report Type: Spontaneous
  Country: DE (occurrence: DE)
  Receive Date: 20190715
  Receipt Date: 20190715
  Transmission Date: 20191004
  Serious: Yes (Hospitalization)
  Sender: FDA-Public Use
  Company Number: DE-DEXPHARM-20190512

PATIENT
  Age: 81 Year
  Sex: Female

DRUGS (10)
  1. LEVOTHYROXIN-NATRIUM [Concomitant]
     Active Substance: LEVOTHYROXINE SODIUM
     Dosage: 125 MICROGRAM, 0.5-0-0-0
  2. METAMIZOL [Concomitant]
     Active Substance: METAMIZOLE SODIUM
  3. MARCUMAR [Suspect]
     Active Substance: PHENPROCOUMON
     Dosage: 3 MG
  4. MOVICOL [Concomitant]
     Active Substance: POLYETHYLENE GLYCOL 3350\POTASSIUM CHLORIDE\SODIUM BICARBONATE\SODIUM CHLORIDE
     Dosage: 1-0-1-0
  5. LORMETAZEPAM [Concomitant]
     Active Substance: LORMETAZEPAM
     Dosage: DAILY DOSE: 2 MG MILLGRAM(S) EVERY DAYS
  6. OMEPRAZOL [Suspect]
     Active Substance: OMEPRAZOLE
     Dosage: DAILY DOSE: 120 MG MILLGRAM(S) EVERY DAYS
  7. AMLODIPINE [Concomitant]
     Active Substance: AMLODIPINE BESYLATE
     Dosage: 5 MG
  8. FUROSEMID [Concomitant]
     Active Substance: FUROSEMIDE
     Dosage: DAILY DOSE: 20 MG MILLGRAM(S) EVERY DAYS
  9. METOPROLOL. [Concomitant]
     Active Substance: METOPROLOL
     Dosage: DAILY DOSE: 47.5 MG MILLGRAM(S) EVERY DAYS
  10. SPIRONOLACTON [Concomitant]
     Active Substance: SPIRONOLACTONE
     Dosage: DAILY DOSE: 50 MG MILLGRAM(S) EVERY DAYS

REACTIONS (3)
  - Haematochezia [Unknown]
  - Product prescribing error [Unknown]
  - Abdominal pain upper [Unknown]
